FAERS Safety Report 24636638 (Version 2)
Quarter: 2024Q4

REPORT INFORMATION
  Report Type: Report from Study
  Country: CA (occurrence: CA)
  Receive Date: 20241119
  Receipt Date: 20241207
  Transmission Date: 20250114
  Serious: Yes (Other)
  Sender: ABBVIE
  Company Number: CA-ABBVIE-6005495

PATIENT
  Sex: Female
  Weight: 47 kg

DRUGS (1)
  1. VENCLEXTA [Suspect]
     Active Substance: VENETOCLAX
     Indication: Acute myeloid leukaemia
     Dosage: FORM STRENGTH: 100 MILLIGRAM
     Route: 048
     Dates: start: 20240223, end: 20240606

REACTIONS (1)
  - Acute myeloid leukaemia recurrent [Recovering/Resolving]

NARRATIVE: CASE EVENT DATE: 20240716
